FAERS Safety Report 11933215 (Version 5)
Quarter: 2016Q1

REPORT INFORMATION
  Report Type: Report from Study
  Country: US (occurrence: US)
  Receive Date: 20160121
  Receipt Date: 20160308
  Transmission Date: 20160526
  Serious: No
  Sender: FDA-Public Use
  Company Number: PHEH2016US001083

PATIENT
  Sex: Male

DRUGS (1)
  1. ENTRESTO [Suspect]
     Active Substance: SACUBITRIL\VALSARTAN
     Indication: CARDIAC FAILURE
     Dosage: 24/26 MG, TID (ONE IN THE MORNING AND TWO AT NIGHT)
     Route: 048

REACTIONS (10)
  - Vision blurred [Unknown]
  - Visual acuity reduced [Unknown]
  - Peripheral swelling [Unknown]
  - Pulmonary congestion [Unknown]
  - Feeling abnormal [Unknown]
  - Weight increased [Unknown]
  - Blood pressure decreased [Unknown]
  - Dyspnoea [Unknown]
  - Drug prescribing error [Unknown]
  - Drug ineffective [Unknown]
